FAERS Safety Report 10712533 (Version 1)
Quarter: 2015Q1

REPORT INFORMATION
  Report Type: Spontaneous
  Country: US (occurrence: US)
  Receive Date: 20150115
  Receipt Date: 20150115
  Transmission Date: 20150721
  Serious: Yes (Hospitalization, Other)
  Sender: FDA-Public Use
  Company Number: US-RB-072124-15

PATIENT
  Age: 19 Year
  Sex: Female

DRUGS (2)
  1. MUCINEX DM [Suspect]
     Active Substance: DEXTROMETHORPHAN HYDROBROMIDE\GUAIFENESIN
     Indication: DRUG ABUSE
     Dosage: 30 TO 40 TABLETS AT A TIME EVERYDAY FOR A FEW MONTHS
     Route: 065
  2. MUCINEX [Suspect]
     Active Substance: GUAIFENESIN
     Indication: DRUG ABUSE
     Dosage: TAKING 30 TO 40 TABLETS AT A TIME EVERYDAY FOR A FEW MONTHS
     Route: 065

REACTIONS (5)
  - Hallucination [Not Recovered/Not Resolved]
  - Insomnia [Unknown]
  - Incorrect drug administration duration [Unknown]
  - Intentional overdose [Unknown]
  - Drug abuse [Not Recovered/Not Resolved]
